FAERS Safety Report 14075473 (Version 1)
Quarter: 2017Q4

REPORT INFORMATION
  Report Type: Spontaneous
  Country: BR (occurrence: BR)
  Receive Date: 20171011
  Receipt Date: 20171011
  Transmission Date: 20180321
  Serious: Yes (Other)
  Sender: FDA-Public Use
  Company Number: BR-AMGEN-BRASP2017151182

PATIENT
  Age: 37 Year
  Sex: Female

DRUGS (4)
  1. CALCIJEX [Concomitant]
     Active Substance: CALCITRIOL
     Dosage: UNK
  2. MIMPARA [Suspect]
     Active Substance: CINACALCET HYDROCHLORIDE
     Indication: PRODUCT USED FOR UNKNOWN INDICATION
     Dosage: 30 MG, QD
     Route: 065
  3. SEVELAMER [Concomitant]
     Active Substance: SEVELAMER
     Dosage: 2 DF, TID
  4. EPO [Concomitant]
     Active Substance: ERYTHROPOIETIN
     Dosage: 4000 UNIT, QWK

REACTIONS (2)
  - Brown tumour [Unknown]
  - Parathyroidectomy [Unknown]
